FAERS Safety Report 11495280 (Version 1)
Quarter: 2015Q3

REPORT INFORMATION
  Report Type: Spontaneous
  Country: US (occurrence: US)
  Receive Date: 20150911
  Receipt Date: 20150911
  Transmission Date: 20151125
  Serious: No
  Sender: FDA-Public Use
  Company Number: US-BIOGENIDEC-2015BI124478

PATIENT

DRUGS (1)
  1. TECFIDERA [Suspect]
     Active Substance: DIMETHYL FUMARATE
     Indication: MULTIPLE SCLEROSIS

REACTIONS (6)
  - Flushing [Recovered/Resolved]
  - Pyrexia [Unknown]
  - Rash pruritic [Recovered/Resolved]
  - Gastrointestinal disorder [Unknown]
  - Chills [Unknown]
  - Vomiting [Unknown]
